FAERS Safety Report 17651515 (Version 1)
Quarter: 2020Q2

REPORT INFORMATION
  Report Type: Spontaneous
  Country: US (occurrence: US)
  Receive Date: 20200409
  Receipt Date: 20200409
  Transmission Date: 20200713
  Serious: No
  Sender: FDA-Public Use
  Company Number: None

PATIENT
  Age: 38 Year
  Sex: Male
  Weight: 142.88 kg

DRUGS (1)
  1. INFLIXIMAB -ABDA (INFLIXIMAB-ABDA 100MG/VIL INJ.LYPHL [Suspect]
     Active Substance: INFLIXIMAB-ABDA
     Indication: HIDRADENITIS
     Dates: start: 20190131, end: 20190328

REACTIONS (3)
  - Nausea [None]
  - Headache [None]
  - Vomiting [None]

NARRATIVE: CASE EVENT DATE: 20190328
